FAERS Safety Report 25015345 (Version 1)
Quarter: 2025Q1

REPORT INFORMATION
  Report Type: Spontaneous
  Country: US (occurrence: US)
  Receive Date: 20250226
  Receipt Date: 20250226
  Transmission Date: 20250409
  Serious: Yes (Hospitalization, Other)
  Sender: AMGEN
  Company Number: US-AMGEN-USASP2025033337

PATIENT

DRUGS (5)
  1. ADALIMUMAB [Suspect]
     Active Substance: ADALIMUMAB
     Indication: Crohn^s disease
     Route: 065
  2. INFLIXIMAB [Suspect]
     Active Substance: INFLIXIMAB
     Indication: Crohn^s disease
     Route: 065
  3. PREDNISONE [Suspect]
     Active Substance: PREDNISONE
     Indication: Crohn^s disease
     Route: 065
  4. USTEKINUMAB [Suspect]
     Active Substance: USTEKINUMAB
     Indication: Crohn^s disease
     Dosage: 90 MILLIGRAM, Q4WK
     Route: 065
  5. VEDOLIZUMAB [Concomitant]
     Active Substance: VEDOLIZUMAB
     Indication: Crohn^s disease
     Dosage: 300 MILLIGRAM, Q4WK
     Route: 065

REACTIONS (17)
  - Crohn^s disease [Unknown]
  - Cholangitis sclerosing [Unknown]
  - Intestinal stenosis [Unknown]
  - Small intestinal perforation [Unknown]
  - Anal fistula [Unknown]
  - Anal abscess [Unknown]
  - Pneumonia [Unknown]
  - Loss of therapeutic response [Unknown]
  - Treatment failure [Unknown]
  - Therapy partial responder [Unknown]
  - Therapy non-responder [Unknown]
  - Arthritis enteropathic [Unknown]
  - Aphthous ulcer [Unknown]
  - Hidradenitis [Unknown]
  - Blood albumin decreased [Unknown]
  - Sinusitis [Unknown]
  - Headache [Unknown]
